FAERS Safety Report 7082037-X (Version None)
Quarter: 2010Q4

REPORT INFORMATION
  Report Type: 
  Country: None (occurrence: None)
  Receive Date: 20101103
  Receipt Date: 20101030
  Transmission Date: 20110411
  Serious: No
  Sender: FDA-Public Use
  Company Number: US-PFIZER INC-2010139144

PATIENT
  Age: 20 Year

DRUGS (1)
  1. GEODON [Suspect]
     Indication: BIPOLAR DISORDER
     Dosage: UNK

REACTIONS (3)
  - CHOKING [None]
  - DYSPEPSIA [None]
  - VOMITING [None]
